FAERS Safety Report 6947989-4 (Version None)
Quarter: 2010Q3

REPORT INFORMATION
  Report Type: 
  Country: None (occurrence: None)
  Receive Date: 20100825
  Receipt Date: 20100809
  Transmission Date: 20110219
  Serious: Yes (Other)
  Sender: FDA-Public Use
  Company Number: ACO_01694_2010

PATIENT
  Age: 43 Year
  Sex: Female

DRUGS (7)
  1. AMPYRA [Suspect]
     Indication: PRODUCT USED FOR UNKNOWN INDICATION
     Dosage: DF ORAL
     Route: 048
     Dates: start: 20100701
  2. MACRODANTIN [Concomitant]
  3. COZAAR [Concomitant]
  4. PAXIL [Concomitant]
  5. ORAL CONTRACEPTIVE NOS [Concomitant]
  6. MOTRIN [Concomitant]
  7. BETASERON [Concomitant]

REACTIONS (13)
  - ABDOMINAL PAIN UPPER [None]
  - BITE [None]
  - BLADDER DISORDER [None]
  - CONFUSIONAL STATE [None]
  - FOAMING AT MOUTH [None]
  - GRAND MAL CONVULSION [None]
  - INAPPROPRIATE SCHEDULE OF DRUG ADMINISTRATION [None]
  - INCORRECT DOSE ADMINISTERED [None]
  - LOSS OF CONSCIOUSNESS [None]
  - MEMORY IMPAIRMENT [None]
  - MULTIPLE SCLEROSIS RELAPSE [None]
  - TREMOR [None]
  - UNRESPONSIVE TO STIMULI [None]
